FAERS Safety Report 22238914 (Version 2)
Quarter: 2023Q2

REPORT INFORMATION
  Report Type: Spontaneous
  Country: IN (occurrence: IN)
  Receive Date: 20230421
  Receipt Date: 20230512
  Transmission Date: 20230721
  Serious: Yes (Other)
  Sender: FDA-Public Use
  Company Number: IN-AMGEN-INDSP2023063909

PATIENT
  Age: 81 Year
  Sex: Female

DRUGS (1)
  1. PROLIA [Suspect]
     Active Substance: DENOSUMAB
     Indication: Breast cancer metastatic
     Dosage: 60 MILLIGRAM
     Route: 065
     Dates: start: 201907

REACTIONS (5)
  - Hungry bone syndrome [Unknown]
  - Osteitis deformans [Unknown]
  - Hypercalcaemia [Unknown]
  - Rebound effect [Unknown]
  - Hypocalcaemia [Recovered/Resolved]
